FAERS Safety Report 7975501-X (Version None)
Quarter: 2011Q4

REPORT INFORMATION
  Report Type: 
  Country: None (occurrence: None)
  Receive Date: 20111213
  Receipt Date: 20110929
  Transmission Date: 20120403
  Serious: No
  Sender: FDA-Public Use
  Company Number: US-AMGEN-USASP2011050506

PATIENT
  Age: 27 Year
  Sex: Male

DRUGS (1)
  1. ENBREL [Suspect]
     Indication: ANKYLOSING SPONDYLITIS
     Dosage: 50 MG, QWK
     Dates: start: 20110201

REACTIONS (6)
  - ANKYLOSING SPONDYLITIS [None]
  - EYE PAIN [None]
  - DYSPNOEA [None]
  - PSORIASIS [None]
  - INCORRECT STORAGE OF DRUG [None]
  - STOMATITIS [None]
